FAERS Safety Report 4383506-3 (Version None)
Quarter: 2004Q2

REPORT INFORMATION
  Report Type: 
  Country: None (occurrence: None)
  Receive Date: 20040618
  Receipt Date: 20040604
  Transmission Date: 20050107
  Serious: No
  Sender: FDA-Public Use
  Company Number: SP00292

PATIENT
  Age: 33 Year

DRUGS (1)
  1. COLAZAL [Suspect]
     Indication: COLITIS ULCERATIVE
     Dosage: 2 CAP/BID; ORAL
     Route: 048
     Dates: start: 20030131, end: 20031201

REACTIONS (2)
  - MALAISE [None]
  - NEUTROPENIA [None]
